FAERS Safety Report 5258512-7 (Version None)
Quarter: 2007Q1

REPORT INFORMATION
  Report Type: 
  Country: None (occurrence: None)
  Receive Date: 20070308
  Receipt Date: 20070228
  Transmission Date: 20070707
  Serious: Yes (Other)
  Sender: FDA-Public Use
  Company Number: GB-JNJFOC-20070205538

PATIENT
  Sex: Male
  Weight: 30 kg

DRUGS (2)
  1. TOPAMAX [Suspect]
     Indication: EPILEPSY
     Route: 048
  2. VALPROATE SODIUM [Concomitant]
     Indication: EPILEPSY
     Route: 065

REACTIONS (3)
  - ANAEMIA [None]
  - LYMPHOCYTOSIS [None]
  - NEUTROPHIL COUNT DECREASED [None]
